FAERS Safety Report 22342974 (Version 4)
Quarter: 2023Q2

REPORT INFORMATION
  Report Type: Report from Study
  Country: US (occurrence: US)
  Receive Date: 20230519
  Receipt Date: 20230616
  Transmission Date: 20230722
  Serious: Yes (Other)
  Sender: FDA-Public Use
  Company Number: US-002147023-NVSC2023US114323

PATIENT
  Sex: Male

DRUGS (2)
  1. ENTRESTO [Suspect]
     Active Substance: SACUBITRIL\VALSARTAN
     Indication: Blood pressure abnormal
     Dosage: UNK
     Route: 065
  2. PRAVASTATIN [Suspect]
     Active Substance: PRAVASTATIN
     Indication: Product used for unknown indication
     Dosage: UNK
     Route: 065

REACTIONS (9)
  - Cardiac flutter [Unknown]
  - Respiratory tract congestion [Unknown]
  - Throat clearing [Unknown]
  - Fluid retention [Unknown]
  - Blood pressure abnormal [Unknown]
  - Pollakiuria [Unknown]
  - Peripheral swelling [Recovering/Resolving]
  - Frustration tolerance decreased [Unknown]
  - Product use in unapproved indication [Unknown]
